FAERS Safety Report 4326048-3 (Version None)
Quarter: 2004Q1

REPORT INFORMATION
  Report Type: 
  Country: None (occurrence: None)
  Receive Date: 20040323
  Receipt Date: 20040308
  Transmission Date: 20041129
  Serious: No
  Sender: FDA-Public Use
  Company Number: 2004-113679-NL

PATIENT
  Sex: Female

DRUGS (1)
  1. REMERON [Suspect]

REACTIONS (11)
  - AGITATION [None]
  - ANXIETY [None]
  - DEPRESSION [None]
  - HEART RATE INCREASED [None]
  - HEPATIC ENZYME INCREASED [None]
  - INCREASED APPETITE [None]
  - LIBIDO DECREASED [None]
  - LIBIDO INCREASED [None]
  - NERVOUSNESS [None]
  - SOMNOLENCE [None]
  - WEIGHT INCREASED [None]
